FAERS Safety Report 6704342-6 (Version None)
Quarter: 2010Q2

REPORT INFORMATION
  Report Type: 
  Country: None (occurrence: None)
  Receive Date: 20100430
  Receipt Date: 20100426
  Transmission Date: 20101027
  Serious: Yes (Other)
  Sender: FDA-Public Use
  Company Number: US-MERCK-1004USA03982

PATIENT
  Age: 82 Year
  Sex: Female

DRUGS (1)
  1. HYZAAR [Suspect]
     Route: 048

REACTIONS (3)
  - ABDOMINAL DISTENSION [None]
  - ADVERSE EVENT [None]
  - OEDEMA PERIPHERAL [None]
